FAERS Safety Report 20147831 (Version 5)
Quarter: 2021Q4

REPORT INFORMATION
  Report Type: Spontaneous
  Country: BG (occurrence: BG)
  Receive Date: 20211203
  Receipt Date: 20211217
  Transmission Date: 20220303
  Serious: Yes (Life-Threatening, Hospitalization, Other)
  Sender: FDA-Public Use
  Company Number: BG-NOVARTISPH-NVSC2021BG275728

PATIENT
  Age: 84 Year
  Sex: Female

DRUGS (5)
  1. METFORMIN [Suspect]
     Active Substance: METFORMIN HYDROCHLORIDE
     Indication: Type 2 diabetes mellitus
     Dosage: 14 DOSAGE FORM (METFORMIN 1000 MG 14 TABLETS AT ONCE) (14000 MG), ONCE/SINGLE
     Route: 048
  2. METFORMIN [Suspect]
     Active Substance: METFORMIN HYDROCHLORIDE
     Dosage: 1000 MG, UNKNOWN
     Route: 048
  3. BISOPROLOL [Suspect]
     Active Substance: BISOPROLOL
     Indication: Hypertension
     Dosage: 28 DOSAGE FORM (BISOPROLOL 5 MG 28 TABLETS AT ONCE) (140 MG), ONCE/SINGLE, PER OS
     Route: 048
  4. AMLODIPINE [Suspect]
     Active Substance: AMLODIPINE BESYLATE
     Indication: Hypertension
     Dosage: 14 DOSAGE FORM (AMLODIPINE 5 MG 14 TABLETS AT ONCE) (70 MG), ONCE/SINGLE
     Route: 048
  5. DIGOXIN [Suspect]
     Active Substance: DIGOXIN
     Indication: Cardiac failure
     Dosage: 7 DOSAGE FORM (DIGOXIN  7 TABLETS AT ONCE), ONCE/SINGLE, PER OS
     Route: 048

REACTIONS (3)
  - Lactic acidosis [Recovered/Resolved]
  - Suicide attempt [Unknown]
  - Intentional overdose [Unknown]

NARRATIVE: CASE EVENT DATE: 20210101
